FAERS Safety Report 5145425-4 (Version None)
Quarter: 2006Q4

REPORT INFORMATION
  Report Type: 
  Country: None (occurrence: None)
  Receive Date: 20061101
  Receipt Date: 20061016
  Transmission Date: 20070319
  Serious: Yes (Other)
  Sender: FDA-Public Use
  Company Number: FR200610002501

PATIENT
  Age: 80 Year
  Sex: Female

DRUGS (6)
  1. FORTEO [Suspect]
     Indication: OSTEOPOROSIS
     Dosage: 20 UG, DAILY (1/D), SUBCUTANEOUS
     Route: 058
     Dates: start: 20051024
  2. FORTEO [Concomitant]
  3. TAHOR [Concomitant]
  4. COTAREG                   (HYDROCHLOROTHIAZIDE, VALSARTAN) [Concomitant]
  5. OROCAL             (CALCIUM CARBONATE) [Concomitant]
  6. ACETAMINOPHEN [Concomitant]

REACTIONS (2)
  - LOSS OF CONSCIOUSNESS [None]
  - MALAISE [None]
